FAERS Safety Report 11329417 (Version 1)
Quarter: 2015Q3

REPORT INFORMATION
  Report Type: Spontaneous
  Country: CN (occurrence: None)
  Receive Date: 20150730
  Receipt Date: 20150730
  Transmission Date: 20151125
  Serious: Yes (Hospitalization)
  Sender: FDA-Public Use
  Company Number: CN-2015VAL000484

PATIENT
  Age: 84 Year
  Sex: Female

DRUGS (1)
  1. ROCALTROL [Suspect]
     Active Substance: CALCITRIOL
     Indication: OSTEOPOROSIS
     Route: 048
     Dates: start: 201505

REACTIONS (2)
  - Fracture [None]
  - Diabetes mellitus [None]

NARRATIVE: CASE EVENT DATE: 201506
